FAERS Safety Report 7535369-2 (Version None)
Quarter: 2011Q2

REPORT INFORMATION
  Report Type: 
  Country: None (occurrence: None)
  Receive Date: 20110609
  Receipt Date: 20080304
  Transmission Date: 20111010
  Serious: Yes (Death)
  Sender: FDA-Public Use
  Company Number: PHHO2008US03175

PATIENT
  Sex: Female

DRUGS (3)
  1. STARLIX [Suspect]
     Dosage: UNK
     Route: 048
     Dates: start: 20010811
  2. METFORMIN HCL [Suspect]
     Indication: DIABETES MELLITUS
     Dosage: UNK
     Route: 048
     Dates: start: 20010811
  3. AVANDIA [Suspect]
     Indication: DIABETES MELLITUS
     Dosage: UNK
     Route: 048

REACTIONS (3)
  - SEPSIS [None]
  - HYPERTENSION [None]
  - DIABETES MELLITUS [None]
